FAERS Safety Report 12346176 (Version 1)
Quarter: 2016Q2

REPORT INFORMATION
  Report Type: Spontaneous
  Country: US (occurrence: US)
  Receive Date: 20160509
  Receipt Date: 20160509
  Transmission Date: 20160815
  Serious: No
  Sender: FDA-Public Use
  Company Number: US-PFIZER INC-2016211173

PATIENT
  Age: 89 Year
  Sex: Female
  Weight: 74.83 kg

DRUGS (30)
  1. CLONAZEPAM. [Concomitant]
     Active Substance: CLONAZEPAM
     Dosage: 0.5 MG, UNK
  2. BOSWELLIA [Concomitant]
     Dosage: 250 MG, UNK
  3. VITAMIN B12 [Concomitant]
     Active Substance: CYANOCOBALAMIN
     Dosage: 500 MG, UNK
  4. LYRICA [Suspect]
     Active Substance: PREGABALIN
     Indication: NEUROPATHY PERIPHERAL
     Dosage: 50 MG, 1X/DAY
     Route: 048
  5. CEPHALEXIN. [Concomitant]
     Active Substance: CEPHALEXIN
     Dosage: 250 MG, UNK
  6. HYALURONIC ACID [Concomitant]
     Active Substance: HYALURONIC ACID
     Dosage: 100 MG, UNK
  7. EVENING PRIMROSE OIL [Concomitant]
     Active Substance: EVENING PRIMROSE OIL
     Dosage: UNK
  8. OMEPRAZOLE. [Concomitant]
     Active Substance: OMEPRAZOLE
     Dosage: 20 MG, UNK
  9. CINNAMON. [Concomitant]
     Active Substance: CINNAMON
     Dosage: 500 MG, UNK
  10. ZINC [Concomitant]
     Active Substance: ZINC\ZINC CHLORIDE
     Dosage: 50 MG, UNK
  11. VITAMIN C [Concomitant]
     Active Substance: ASCORBIC ACID
     Dosage: 500 MG, UNK
  12. LYRICA [Suspect]
     Active Substance: PREGABALIN
     Indication: HYPOAESTHESIA
     Dosage: UNK, 2X/DAY
  13. LYRICA [Suspect]
     Active Substance: PREGABALIN
     Indication: PARAESTHESIA
  14. ASPIRIN. [Concomitant]
     Active Substance: ASPIRIN
     Dosage: 81 MG, UNK
  15. DIAZEPAM. [Concomitant]
     Active Substance: DIAZEPAM
     Dosage: 5 MG, UNK
  16. ACIDOPHILUS PLUS [Concomitant]
     Dosage: UNK
  17. VITAMIN D3 [Concomitant]
     Active Substance: CHOLECALCIFEROL
     Dosage: 100 MG, UNK
  18. LEVOTHYROXINE. [Concomitant]
     Active Substance: LEVOTHYROXINE
     Dosage: 125 UG, UNK
  19. SOY ISOFLAVONE [Concomitant]
     Active Substance: ISOFLAVONES SOY
     Dosage: UNK
  20. ESTER-C [Concomitant]
     Active Substance: CALCIUM\VITAMINS
     Dosage: 500 MG, UNK
  21. METFORMIN [Concomitant]
     Active Substance: METFORMIN HYDROCHLORIDE
     Dosage: 500 MG, UNK
  22. VITAMINS /00067501/ [Concomitant]
     Active Substance: VITAMINS
  23. CALCIUM [Concomitant]
     Active Substance: CALCIUM
     Dosage: 1200 MG, UNK
  24. BIOTIN [Concomitant]
     Active Substance: BIOTIN
     Dosage: 1000 MG, UNK
  25. DIAZEPAM. [Concomitant]
     Active Substance: DIAZEPAM
     Dosage: 0.5 MG, UNK
  26. VITAMIN D [Concomitant]
     Active Substance: CHOLECALCIFEROL
     Dosage: 1000 IU, UNK
  27. GABAPENTIN. [Concomitant]
     Active Substance: GABAPENTIN
     Dosage: 300 MG, UNK
  28. MILK THISTLE [Concomitant]
     Active Substance: MILK THISTLE
     Dosage: 1000 MG, UNK
  29. PROBIOTIC ACIDOPHILUS [Concomitant]
     Active Substance: LACTOBACILLUS ACIDOPHILUS
     Dosage: UNK
  30. AVIL [Concomitant]
     Active Substance: PHENIRAMINE
     Dosage: 50 MG, UNK

REACTIONS (5)
  - Fall [Unknown]
  - Asthenia [Unknown]
  - Muscle spasms [Unknown]
  - Hypertension [Recovered/Resolved]
  - Body height increased [Unknown]
